FAERS Safety Report 16256092 (Version 6)
Quarter: 2020Q2

REPORT INFORMATION
  Report Type: Spontaneous
  Country: PT (occurrence: PT)
  Receive Date: 20190430
  Receipt Date: 20200409
  Transmission Date: 20200713
  Serious: Yes (Hospitalization, Other)
  Sender: FDA-Public Use
  Company Number: PT-AUROBINDO-AUR-APL-2019-023279

PATIENT
  Age: 10 Year
  Sex: Female

DRUGS (3)
  1. ONDANSETRON 4MG [Suspect]
     Active Substance: ONDANSETRON
     Indication: GASTROENTERITIS
     Dosage: 4 MILLIGRAM
     Route: 048
     Dates: start: 201702
  2. ONDANSETRON 4MG [Suspect]
     Active Substance: ONDANSETRON
     Indication: VOMITING
  3. ONDANSETRON [Suspect]
     Active Substance: ONDANSETRON
     Indication: SKIN TEST
     Dosage: UNK (2MG/ML)
     Route: 023

REACTIONS (7)
  - Product use in unapproved indication [Recovered/Resolved]
  - Oropharyngeal swelling [Recovered/Resolved]
  - Off label use [Recovered/Resolved]
  - Oropharyngeal discomfort [Recovered/Resolved]
  - Urticaria [Recovered/Resolved]
  - Drug hypersensitivity [Recovered/Resolved]
  - Allergy test positive [Unknown]

NARRATIVE: CASE EVENT DATE: 201702
